FAERS Safety Report 9065508 (Version 1)
Quarter: 2013Q1

REPORT INFORMATION
  Report Type: Spontaneous
  Country: US (occurrence: US)
  Receive Date: 20130206
  Receipt Date: 20130206
  Transmission Date: 20140127
  Serious: Yes (Death, Other)
  Sender: FDA-Public Use
  Company Number: US-MUTUAL PHARMACEUTICAL COMPANY, INC.-BCTM20130015

PATIENT
  Sex: Female

DRUGS (8)
  1. BACTRIM [Suspect]
     Indication: PRODUCT USED FOR UNKNOWN INDICATION
     Route: 065
     Dates: end: 2012
  2. JAKAFI [Suspect]
     Indication: MYELOFIBROSIS
     Route: 048
     Dates: end: 20120717
  3. JAKAFI [Suspect]
     Route: 048
  4. JAKAFI [Suspect]
     Indication: MYELOFIBROSIS
     Route: 048
     Dates: start: 20120718, end: 2012
  5. VANCOMYCIN [Suspect]
     Indication: PRODUCT USED FOR UNKNOWN INDICATION
     Route: 065
     Dates: end: 2012
  6. MEROPENEM [Suspect]
     Indication: PRODUCT USED FOR UNKNOWN INDICATION
     Route: 065
     Dates: end: 2012
  7. VALTREX [Suspect]
     Indication: PRODUCT USED FOR UNKNOWN INDICATION
     Route: 065
     Dates: end: 2012
  8. VORICONAZOLE [Suspect]
     Indication: PRODUCT USED FOR UNKNOWN INDICATION
     Route: 065
     Dates: end: 2012

REACTIONS (4)
  - Myelodysplastic syndrome transformation [None]
  - Device related sepsis [None]
  - Febrile neutropenia [None]
  - Thrombocytopenia [None]
